FAERS Safety Report 16332840 (Version 1)
Quarter: 2019Q2

REPORT INFORMATION
  Report Type: Spontaneous
  Country: US (occurrence: US)
  Receive Date: 20190520
  Receipt Date: 20190520
  Transmission Date: 20190711
  Serious: Yes (Other)
  Sender: FDA-Public Use
  Company Number: US-PFIZER INC-2019203681

PATIENT
  Age: 25 Year
  Sex: Female

DRUGS (4)
  1. VECURONIUM BROMIDE. [Suspect]
     Active Substance: VECURONIUM BROMIDE
     Dosage: 5 MG, UNK
  2. FENTANYL CITRATE. [Suspect]
     Active Substance: FENTANYL CITRATE
     Dosage: 100 UG, UNK
  3. PROPOFOL. [Suspect]
     Active Substance: PROPOFOL
     Dosage: 180 MG, UNK
  4. NEOSTIGMINE. [Suspect]
     Active Substance: NEOSTIGMINE METHYLSULFATE
     Dosage: 2.5 MG, UNK

REACTIONS (1)
  - Atrioventricular block complete [Unknown]
